FAERS Safety Report 6634640-6 (Version None)
Quarter: 2010Q1

REPORT INFORMATION
  Report Type: 
  Country: None (occurrence: None)
  Receive Date: 20100315
  Receipt Date: 20100304
  Transmission Date: 20100710
  Serious: Yes (Hospitalization)
  Sender: FDA-Public Use
  Company Number: B0527561A

PATIENT
  Sex: Female

DRUGS (1)
  1. LAMICTAL CD [Suspect]
     Indication: DEPRESSION
     Dosage: 100MG PER DAY
     Route: 048
     Dates: start: 20080330, end: 20080523

REACTIONS (3)
  - CHOLANGIOLITIS [None]
  - HEPATITIS ACUTE [None]
  - JAUNDICE [None]
